FAERS Safety Report 20197933 (Version 9)
Quarter: 2023Q4

REPORT INFORMATION
  Report Type: Spontaneous
  Country: CN (occurrence: US)
  Receive Date: 20211217
  Receipt Date: 20231212
  Transmission Date: 20240110
  Serious: Yes (Other)
  Sender: FDA-Public Use
  Company Number: CN-VIIV HEALTHCARE LIMITED-US2021APC252279

PATIENT

DRUGS (9)
  1. TIVICAY [Suspect]
     Active Substance: DOLUTEGRAVIR SODIUM
     Indication: HIV infection
     Dosage: 1 DF, QD
     Route: 048
     Dates: start: 201809, end: 2019
  2. TIVICAY [Suspect]
     Active Substance: DOLUTEGRAVIR SODIUM
     Dosage: 1 DF, QD
     Route: 048
     Dates: start: 2019
  3. TIVICAY [Suspect]
     Active Substance: DOLUTEGRAVIR SODIUM
     Dosage: 1 DF, QD
     Route: 048
     Dates: end: 20230628
  4. TIVICAY [Suspect]
     Active Substance: DOLUTEGRAVIR SODIUM
     Dosage: 1 DF, QD, MANUFACTURED IN POLAND
     Route: 048
     Dates: start: 20230629
  5. TIVICAY [Suspect]
     Active Substance: DOLUTEGRAVIR SODIUM
     Dosage: 1 DF, QD, MANUFACTURED IN UK
     Route: 048
     Dates: start: 20230801
  6. TIVICAY [Suspect]
     Active Substance: DOLUTEGRAVIR SODIUM
     Dosage: UNK, 4 DAYS AGO TABLET STARTED
     Route: 048
     Dates: start: 202311
  7. TIVICAY [Suspect]
     Active Substance: DOLUTEGRAVIR SODIUM
     Dosage: UNK 50 MG (MANUFACTURED IN UK)
     Route: 048
  8. LOPINAVIR\RITONAVIR [Suspect]
     Active Substance: LOPINAVIR\RITONAVIR
     Indication: HIV infection
     Dosage: UNK
  9. DOLUTEGRAVIR SODIUM [Suspect]
     Active Substance: DOLUTEGRAVIR SODIUM
     Indication: HIV infection
     Dosage: 1 DF, QD
     Route: 048

REACTIONS (24)
  - Pneumonia [Recovered/Resolved]
  - Corneal infection [Recovered/Resolved]
  - Weight increased [Unknown]
  - Insomnia [Not Recovered/Not Resolved]
  - Asthenia [Unknown]
  - Malaise [Unknown]
  - Headache [Unknown]
  - Abnormal dreams [Unknown]
  - Nocturia [Not Recovered/Not Resolved]
  - Back pain [Not Recovered/Not Resolved]
  - Abdominal pain lower [Not Recovered/Not Resolved]
  - Urinary tract infection [Recovered/Resolved]
  - Erection increased [Unknown]
  - Constipation [Unknown]
  - Eye pain [Recovered/Resolved]
  - Eye discharge [Recovered/Resolved]
  - Ocular hyperaemia [Recovered/Resolved]
  - Ocular discomfort [Recovered/Resolved]
  - Abdominal pain [Recovered/Resolved]
  - Pain [Not Recovered/Not Resolved]
  - Discomfort [Unknown]
  - Diarrhoea [Recovered/Resolved]
  - Suspected counterfeit product [Unknown]
  - Product complaint [Unknown]

NARRATIVE: CASE EVENT DATE: 20190101
